FAERS Safety Report 21595994 (Version 7)
Quarter: 2023Q1

REPORT INFORMATION
  Report Type: Report from Study
  Country: US (occurrence: None)
  Receive Date: 20221115
  Receipt Date: 20230303
  Transmission Date: 20230418
  Serious: Yes (Other)
  Sender: FDA-Public Use
  Company Number: US-ROCHE-3203123

PATIENT
  Age: 68 Year
  Sex: Male
  Weight: 80 kg

DRUGS (20)
  1. RANIBIZUMAB [Suspect]
     Active Substance: RANIBIZUMAB
     Indication: Diabetic retinal oedema
     Dosage: DOSE OF STUDY DRUG FIRST ADMINISTERED 10 MG/ML; DOSE LAST STUDY DRUG ADMIN PRIOR AE 100 MG/ML?START
     Route: 050
     Dates: start: 20210517
  2. RANIBIZUMAB [Suspect]
     Active Substance: RANIBIZUMAB
  3. JARDIANCE [Concomitant]
     Active Substance: EMPAGLIFLOZIN
     Indication: Type 2 diabetes mellitus
     Route: 048
     Dates: start: 2011
  4. METFORMIN [Concomitant]
     Active Substance: METFORMIN HYDROCHLORIDE
     Indication: Type 2 diabetes mellitus
     Route: 048
     Dates: start: 2011
  5. POTASSIUM [Concomitant]
     Active Substance: POTASSIUM
     Indication: Cardiovascular event prophylaxis
     Dosage: 10 OTHER
     Route: 048
     Dates: start: 2018
  6. FUROSEMIDE [Concomitant]
     Active Substance: FUROSEMIDE
     Indication: Cardiac failure congestive
     Route: 048
     Dates: start: 2018
  7. ENTRESTO [Concomitant]
     Active Substance: SACUBITRIL\VALSARTAN
     Indication: Cardiac failure congestive
     Route: 048
     Dates: start: 2018
  8. DIGOXIN [Concomitant]
     Active Substance: DIGOXIN
     Indication: Cardiac failure congestive
     Route: 048
     Dates: start: 2018
  9. CARVEDILOL [Concomitant]
     Active Substance: CARVEDILOL
     Indication: Hypertension
     Route: 048
     Dates: start: 2018
  10. MOXIFLOXACIN [Concomitant]
     Active Substance: MOXIFLOXACIN
     Dates: start: 20230201, end: 20230208
  11. MOXIFLOXACIN [Concomitant]
     Active Substance: MOXIFLOXACIN
     Dates: start: 20230109, end: 20230117
  12. PREDNISOLONE [Concomitant]
     Active Substance: PREDNISOLONE
     Dates: start: 20230201
  13. PREDNISOLONE [Concomitant]
     Active Substance: PREDNISOLONE
     Dates: start: 20230111
  14. MAXITROL [Concomitant]
     Active Substance: DEXAMETHASONE\NEOMYCIN SULFATE\POLYMYXIN B SULFATE
     Dates: start: 20230201, end: 20230208
  15. ATROPINE [Concomitant]
     Active Substance: ATROPINE
     Dates: start: 20230201, end: 20230208
  16. TIMOLOL [Concomitant]
     Active Substance: TIMOLOL
     Dates: start: 20230201, end: 20230208
  17. LUMIGAN [Concomitant]
     Active Substance: BIMATOPROST
     Dates: start: 20230206, end: 20230215
  18. RHOPRESSA [Concomitant]
     Active Substance: NETARSUDIL MESYLATE
     Dates: start: 20230206, end: 20230215
  19. COSOPT [Concomitant]
     Active Substance: DORZOLAMIDE HYDROCHLORIDE\TIMOLOL MALEATE
     Dates: start: 20230209, end: 20230215
  20. DIAMOX SEQUELS [Concomitant]
     Active Substance: ACETAZOLAMIDE
     Dates: start: 20230209, end: 20230213

REACTIONS (5)
  - Retinal detachment [Recovered/Resolved]
  - Retinopathy proliferative [Recovered/Resolved]
  - Cataract [Recovered/Resolved]
  - Vitreous haemorrhage [Recovered/Resolved]
  - Hyphaema [Recovered/Resolved]

NARRATIVE: CASE EVENT DATE: 20221017
